FAERS Safety Report 7302801-9 (Version None)
Quarter: 2011Q1

REPORT INFORMATION
  Report Type: 
  Country: None (occurrence: None)
  Receive Date: 20110218
  Receipt Date: 20101207
  Transmission Date: 20110831
  Serious: No
  Sender: FDA-Public Use
  Company Number: US-BAYER-2010-008975

PATIENT
  Sex: Female
  Weight: 79.365 kg

DRUGS (22)
  1. FUROSEMIDE [Concomitant]
  2. GARLIC [Concomitant]
  3. GLUCOSAMINE W/METHYLSULFONYLMETHANE [Concomitant]
  4. GABAPENTIN [Concomitant]
  5. PAROXETINE HCL [Concomitant]
  6. LEFLUNOMIDE [Concomitant]
  7. VITAMIN E [Concomitant]
  8. ACETAMINOPHEN AND HYDROCODONE BITARTRATE [Concomitant]
  9. SIMVASTATIN [Concomitant]
  10. ESTRADIOL [Concomitant]
  11. ALEVE (CAPLET) [Suspect]
     Indication: ARTHRITIS
     Dosage: 1 DF, QD
     Route: 048
     Dates: start: 20101107
  12. VITAMIN D [Concomitant]
  13. SULINDAC [Concomitant]
  14. KLOR-CON [Concomitant]
  15. TRAZODONE [Concomitant]
  16. CINNAMON [Concomitant]
  17. LISINOPRIL [Concomitant]
  18. TIZANIDINE [Concomitant]
  19. NIACIN [Concomitant]
  20. ROPINIROLE [Concomitant]
  21. FISH OIL [Concomitant]
  22. FLAX SEED OIL [Concomitant]

REACTIONS (1)
  - NO ADVERSE EVENT [None]
